FAERS Safety Report 4308357-7 (Version None)
Quarter: 2004Q1

REPORT INFORMATION
  Report Type: 
  Country: None (occurrence: None)
  Receive Date: 20040301
  Receipt Date: 20040127
  Transmission Date: 20041129
  Serious: Yes (Death, Life-Threatening)
  Sender: FDA-Public Use
  Company Number: PHHO2004BE01567

PATIENT
  Age: 82 Year
  Sex: Female
  Weight: 70 kg

DRUGS (12)
  1. NEORAL [Suspect]
     Indication: LIVER TRANSPLANT
     Dosage: 50 MG, BID
     Route: 048
     Dates: start: 19881219
  2. CORTICOSTEROIDS [Concomitant]
  3. SOLU-MEDROL [Concomitant]
     Dosage: 4 MG / DAY
     Route: 048
  4. HEMODIALYSIS [Concomitant]
  5. VITAMIN C [Concomitant]
  6. RECORMON [Concomitant]
  7. DECA-DURABOLIN [Concomitant]
  8. VENOFER [Concomitant]
  9. SOFTENE [Concomitant]
  10. COZAAR [Concomitant]
  11. EFFEXOR [Concomitant]
  12. MOVICOL [Concomitant]

REACTIONS (7)
  - COMA [None]
  - GENERAL PHYSICAL HEALTH DETERIORATION [None]
  - GLOMERULONEPHRITIS [None]
  - MALNUTRITION [None]
  - NEPHROPATHY TOXIC [None]
  - RENAL FAILURE CHRONIC [None]
  - WEIGHT DECREASED [None]
